FAERS Safety Report 9308278 (Version 1)
Quarter: 2013Q2

REPORT INFORMATION
  Report Type: Spontaneous
  Country: US (occurrence: US)
  Receive Date: 20130524
  Receipt Date: 20130524
  Transmission Date: 20140414
  Serious: Yes (Other)
  Sender: FDA-Public Use
  Company Number: PHEH2013US011423

PATIENT
  Sex: 0

DRUGS (1)
  1. SIMULECT [Suspect]

REACTIONS (1)
  - Graft versus host disease [Unknown]
